FAERS Safety Report 12332596 (Version 1)
Quarter: 2016Q2

REPORT INFORMATION
  Report Type: Spontaneous
  Country: US (occurrence: US)
  Receive Date: 20160504
  Receipt Date: 20160504
  Transmission Date: 20160815
  Serious: No
  Sender: FDA-Public Use
  Company Number: US-ROCHE-ITM201505IM016240

PATIENT
  Sex: Female

DRUGS (1)
  1. ESBRIET [Suspect]
     Active Substance: PIRFENIDONE
     Indication: IDIOPATHIC PULMONARY FIBROSIS
     Dosage: 2403 MG
     Route: 048
     Dates: start: 20150429

REACTIONS (8)
  - Seasonal allergy [Unknown]
  - Headache [Unknown]
  - Abdominal discomfort [Unknown]
  - Hernia [Unknown]
  - Decreased appetite [Unknown]
  - Nasopharyngitis [Unknown]
  - Fatigue [Unknown]
  - Dyspepsia [Unknown]
